FAERS Safety Report 10161195 (Version 1)
Quarter: 2014Q2

REPORT INFORMATION
  Report Type: Spontaneous
  Country: CA (occurrence: CA)
  Receive Date: 20140508
  Receipt Date: 20140508
  Transmission Date: 20141212
  Serious: Yes (Other)
  Sender: FDA-Public Use
  Company Number: CA-ALLERGAN-1408712US

PATIENT
  Age: 70 Year
  Sex: Male

DRUGS (5)
  1. COMBIGAN [Suspect]
     Indication: GLAUCOMA
     Dosage: 2 GTT, BID
     Route: 047
     Dates: start: 20140428
  2. COMBIGAN [Suspect]
     Dosage: UNK
     Route: 047
     Dates: start: 2012
  3. AZOPT [Concomitant]
     Indication: GLAUCOMA
  4. TRAVATAN [Concomitant]
     Indication: GLAUCOMA
  5. CARBAPINE [Concomitant]
     Indication: GLAUCOMA

REACTIONS (1)
  - Hypotension [Unknown]
